FAERS Safety Report 20060086 (Version 3)
Quarter: 2021Q4

REPORT INFORMATION
  Report Type: Spontaneous
  Country: CZ (occurrence: CZ)
  Receive Date: 20211111
  Receipt Date: 20211217
  Transmission Date: 20220304
  Serious: Yes (Death)
  Sender: FDA-Public Use
  Company Number: CZ-BAXTER-2021BAX034946

PATIENT
  Sex: Female

DRUGS (2)
  1. SEVOFLURANE [Suspect]
     Active Substance: SEVOFLURANE
     Indication: Anaesthesia procedure
     Dosage: SEVOFLURANE BAXTER 100% INH LIQ VAP 6 X 250ML
     Route: 055
     Dates: start: 20211026, end: 20211026
  2. SEVOFLURANE [Suspect]
     Active Substance: SEVOFLURANE
     Indication: Skin cosmetic procedure

REACTIONS (2)
  - Sudden death [Fatal]
  - Suspected product quality issue [Unknown]

NARRATIVE: CASE EVENT DATE: 20211026
